FAERS Safety Report 14990985 (Version 1)
Quarter: 2018Q2

REPORT INFORMATION
  Report Type: Spontaneous
  Country: PL (occurrence: PL)
  Receive Date: 20180608
  Receipt Date: 20180608
  Transmission Date: 20180711
  Serious: Yes (Hospitalization)
  Sender: FDA-Public Use
  Company Number: PL-FRESENIUS KABI-FK201806561

PATIENT
  Age: 44 Year
  Sex: Male
  Weight: 77.2 kg

DRUGS (1)
  1. PACLITAXEL (MANUFACTURER UNKNOWN) [Suspect]
     Active Substance: PACLITAXEL
     Indication: METASTATIC NEOPLASM
     Route: 042
     Dates: start: 20140219, end: 20140219

REACTIONS (4)
  - Back pain [Recovered/Resolved]
  - Anxiety [Recovered/Resolved]
  - Erythema [Recovered/Resolved]
  - Dyspnoea [Recovered/Resolved]

NARRATIVE: CASE EVENT DATE: 20140219
